FAERS Safety Report 18430497 (Version 1)
Quarter: 2020Q4

REPORT INFORMATION
  Report Type: Spontaneous
  Country: DE (occurrence: DE)
  Receive Date: 20201027
  Receipt Date: 20201027
  Transmission Date: 20210114
  Serious: Yes (Hospitalization, Other)
  Sender: FDA-Public Use
  Company Number: NVSC2020DE281589

PATIENT
  Age: 26 Year
  Sex: Female

DRUGS (5)
  1. PIPERACILLIN/TAZOBACTAM [Suspect]
     Active Substance: PIPERACILLIN SODIUM\TAZOBACTAM SODIUM
     Dosage: 4.5 G, Q8H
     Route: 042
     Dates: start: 20180807, end: 20180807
  2. GAMMANORM [Concomitant]
     Active Substance: HUMAN IMMUNOGLOBULIN G
     Indication: PRODUCT USED FOR UNKNOWN INDICATION
     Dosage: 6.6 G, QW
     Route: 058
     Dates: start: 2007
  3. PIPERACILLIN/TAZOBACTAM [Suspect]
     Active Substance: PIPERACILLIN SODIUM\TAZOBACTAM SODIUM
     Dosage: 4.5 G, QD
     Route: 042
     Dates: start: 20180808, end: 20180808
  4. PIPERACILLIN/TAZOBACTAM [Suspect]
     Active Substance: PIPERACILLIN SODIUM\TAZOBACTAM SODIUM
     Indication: PNEUMONIA
     Dosage: 4.5 G, Q12H (3X T?GLICH)
     Route: 042
     Dates: start: 20180806, end: 20180806
  5. DEKRISTOL [Concomitant]
     Active Substance: CHOLECALCIFEROL
     Indication: PRODUCT USED FOR UNKNOWN INDICATION
     Dosage: 20000 IU, QW
     Route: 048

REACTIONS (15)
  - Sedation [Recovered/Resolved]
  - Circulatory collapse [Recovered/Resolved]
  - Asthenia [Recovered/Resolved]
  - Sleep disorder [Recovered/Resolved]
  - Chromaturia [Recovered/Resolved]
  - Rash [Recovered/Resolved]
  - Pruritus [Recovered/Resolved]
  - Decreased appetite [Recovered/Resolved]
  - Faeces discoloured [Recovered/Resolved]
  - Constipation [Recovered/Resolved]
  - Hepatotoxicity [Recovered/Resolved]
  - Transaminases increased [Recovered/Resolved]
  - Malaise [Recovered/Resolved]
  - Back pain [Recovered/Resolved]
  - Abdominal discomfort [Recovered/Resolved]

NARRATIVE: CASE EVENT DATE: 20180807
